FAERS Safety Report 16540181 (Version 1)
Quarter: 2019Q3

REPORT INFORMATION
  Report Type: Spontaneous
  Country: CZ (occurrence: CZ)
  Receive Date: 20190708
  Receipt Date: 20190708
  Transmission Date: 20191004
  Serious: Yes (Other)
  Sender: FDA-Public Use
  Company Number: CZ-BAYER-2019-127166

PATIENT

DRUGS (1)
  1. NEXAVAR [Suspect]
     Active Substance: SORAFENIB
     Indication: RENAL CANCER
     Dosage: UNK
     Route: 048
     Dates: start: 20160624, end: 20181012

REACTIONS (1)
  - Renal cancer [None]

NARRATIVE: CASE EVENT DATE: 2018
